FAERS Safety Report 22345556 (Version 1)
Quarter: 2023Q2

REPORT INFORMATION
  Report Type: Spontaneous
  Country: US (occurrence: None)
  Receive Date: 20230518
  Receipt Date: 20230518
  Transmission Date: 20230722
  Serious: Yes (Hospitalization)
  Sender: FDA-Public Use
  Company Number: None

PATIENT
  Age: 65 Year
  Sex: Female

DRUGS (15)
  1. SPRYCEL [Suspect]
     Active Substance: DASATINIB
     Indication: Philadelphia positive chronic myeloid leukaemia
     Dosage: 20 MG ORAL??TAKE ONE TABLET BY MOUTH BEFORE BEDTIME DAILY
     Route: 048
     Dates: start: 20180403
  2. AMLODIPINE [Concomitant]
     Active Substance: AMLODIPINE BESYLATE
  3. BENAZEPRIL [Concomitant]
  4. CEFDINIR [Concomitant]
     Active Substance: CEFDINIR
  5. DILAUDID [Concomitant]
  6. ESTRADIOL DIS [Concomitant]
     Dosage: OTHER QUANTITY : 0.025 MG ;?
  7. ACETAMINOPHEN\HYDROCODONE [Concomitant]
     Active Substance: ACETAMINOPHEN\HYDROCODONE
  8. LACTASE [Concomitant]
     Active Substance: LACTASE
  9. LIDOCAINE HYDROCHLORIDE [Concomitant]
     Active Substance: LIDOCAINE HYDROCHLORIDE
  10. JELLY [Concomitant]
  11. LISINOPRIL [Concomitant]
  12. VALSARTAN [Concomitant]
     Active Substance: VALSARTAN
  13. VITAMIN D CAP [Concomitant]
  14. XIFAXAN [Concomitant]
     Active Substance: RIFAXIMIN
  15. ZOFRAN [Concomitant]

REACTIONS (4)
  - Vomiting [None]
  - Diarrhoea [None]
  - Headache [None]
  - Cerebral cyst [None]

NARRATIVE: CASE EVENT DATE: 20230504
